FAERS Safety Report 12848090 (Version 1)
Quarter: 2016Q4

REPORT INFORMATION
  Report Type: Spontaneous
  Country: US (occurrence: US)
  Receive Date: 20161014
  Receipt Date: 20161014
  Transmission Date: 20170207
  Serious: No
  Sender: FDA-Public Use
  Company Number: US-JNJFOC-20160814711

PATIENT
  Age: 3 Year
  Sex: Female
  Weight: 11.34 kg

DRUGS (2)
  1. CHILDRENS MOTRIN [Suspect]
     Active Substance: IBUPROFEN
     Indication: NASOPHARYNGITIS
     Dosage: EVERY 6 HOURS OR AS NEEDED
     Route: 048
     Dates: start: 20160815
  2. CHILDRENS MOTRIN [Suspect]
     Active Substance: IBUPROFEN
     Indication: PYREXIA
     Dosage: EVERY 6 HOURS OR AS NEEDED
     Route: 048
     Dates: start: 20160815

REACTIONS (2)
  - Inappropriate schedule of drug administration [Unknown]
  - Extra dose administered [Unknown]

NARRATIVE: CASE EVENT DATE: 20160816
